FAERS Safety Report 8294083-9 (Version None)
Quarter: 2012Q2

REPORT INFORMATION
  Report Type: 
  Country: None (occurrence: None)
  Receive Date: 20120418
  Receipt Date: 20120405
  Transmission Date: 20120825
  Serious: Yes (Other)
  Sender: FDA-Public Use
  Company Number: CA-JNJFOC-20120403669

PATIENT
  Sex: Female
  Weight: 117 kg

DRUGS (4)
  1. BIRTH CONTROL PILLS [Suspect]
     Indication: PRODUCT USED FOR UNKNOWN INDICATION
     Route: 065
  2. ASPIRIN [Concomitant]
     Route: 065
  3. IMURAN [Concomitant]
     Route: 065
  4. REMICADE [Suspect]
     Indication: CROHN'S DISEASE
     Route: 042
     Dates: start: 20100715

REACTIONS (2)
  - THROMBOSIS [None]
  - ARTHRALGIA [None]
